FAERS Safety Report 5688083-2 (Version None)
Quarter: 2008Q1

REPORT INFORMATION
  Report Type: 
  Country: None (occurrence: None)
  Receive Date: 20080327
  Receipt Date: 20080311
  Transmission Date: 20080703
  Serious: Yes (Hospitalization, Other)
  Sender: FDA-Public Use
  Company Number: D-08-0019

PATIENT
  Age: 71 Year
  Sex: Male

DRUGS (15)
  1. JANTOVEN [Suspect]
     Indication: TRANSIENT ISCHAEMIC ATTACK
     Dosage: 5 MG, QD, PO
     Route: 048
  2. WARFARIN SODIUM [Suspect]
     Indication: TRANSIENT ISCHAEMIC ATTACK
     Dosage: PO
     Route: 048
     Dates: start: 19920101
  3. NORCO [Concomitant]
  4. ONDANSETRON [Concomitant]
  5. NEURONTIN [Concomitant]
  6. FLOMAX [Concomitant]
  7. PREVACID [Concomitant]
  8. TOPROL-XL [Concomitant]
  9. ZOCOR [Concomitant]
  10. ALBUTEROL [Concomitant]
  11. MUCINEX [Concomitant]
  12. MIRALAX [Concomitant]
  13. FOLIC ACID [Concomitant]
  14. VITAMIN E [Concomitant]
  15. VITAMIN B6 [Concomitant]

REACTIONS (8)
  - BONE NEOPLASM MALIGNANT [None]
  - COUGH [None]
  - PAIN [None]
  - POST PROCEDURAL COMPLICATION [None]
  - PROTHROMBIN TIME ABNORMAL [None]
  - RENAL DISORDER [None]
  - RENAL FAILURE [None]
  - WEIGHT DECREASED [None]
